FAERS Safety Report 9558064 (Version 1)
Quarter: 2013Q3

REPORT INFORMATION
  Report Type: Spontaneous
  Country: US (occurrence: US)
  Receive Date: 20130926
  Receipt Date: 20130926
  Transmission Date: 20140515
  Serious: No
  Sender: FDA-Public Use
  Company Number: US-BIOGENIDEC-2013BI040001

PATIENT
  Age: 56 Year
  Sex: Female

DRUGS (1)
  1. TECFIDERA [Suspect]
     Indication: MULTIPLE SCLEROSIS
     Route: 048
     Dates: start: 20130427

REACTIONS (9)
  - Pruritus [Unknown]
  - Nausea [Unknown]
  - Tinnitus [Unknown]
  - Tachycardia [Unknown]
  - Ear discomfort [Unknown]
  - Burning sensation [Unknown]
  - Dizziness postural [Unknown]
  - Urinary incontinence [Unknown]
  - Memory impairment [Unknown]
